FAERS Safety Report 12493487 (Version 1)
Quarter: 2016Q2

REPORT INFORMATION
  Report Type: Report from Study
  Country: DE (occurrence: DE)
  Receive Date: 20160623
  Receipt Date: 20160623
  Transmission Date: 20160815
  Serious: Yes (Other)
  Sender: FDA-Public Use
  Company Number: DE-BAYER-2016-115632

PATIENT
  Age: 36 Year
  Sex: Female

DRUGS (1)
  1. BETAFERON [Suspect]
     Active Substance: INTERFERON BETA-1B
     Indication: MULTIPLE SCLEROSIS
     Dosage: 250 ?G, QOD
     Route: 058
     Dates: start: 20130304

REACTIONS (6)
  - Mobility decreased [Recovering/Resolving]
  - Injection site reaction [Recovering/Resolving]
  - Injection site abscess [Recovering/Resolving]
  - Skin disorder [Recovered/Resolved]
  - Skin lesion [Recovered/Resolved]
  - Body fat disorder [None]
